FAERS Safety Report 7718522-4 (Version None)
Quarter: 2011Q3

REPORT INFORMATION
  Report Type: 
  Country: None (occurrence: None)
  Receive Date: 20110830
  Receipt Date: 20110818
  Transmission Date: 20111222
  Serious: Yes (Other)
  Sender: FDA-Public Use
  Company Number: DK-UCBSA-023292

PATIENT
  Sex: Female

DRUGS (9)
  1. METOTAB [Concomitant]
  2. PRAVACHOL [Concomitant]
  3. NITROLINGUAL [Concomitant]
  4. ATENOLOL [Concomitant]
  5. ASPIRIN [Concomitant]
  6. CIMZIA [Suspect]
     Indication: RHEUMATOID ARTHRITIS
     Route: 058
     Dates: start: 20100401
  7. LEVOTHYROXINE SODIUM [Concomitant]
  8. SPIRONOLACTONE [Concomitant]
  9. RISEDRONATE SODIUM [Concomitant]

REACTIONS (1)
  - LEUKOCYTOCLASTIC VASCULITIS [None]
